FAERS Safety Report 16453836 (Version 7)
Quarter: 2020Q1

REPORT INFORMATION
  Report Type: Report from Study
  Country: DE (occurrence: DE)
  Receive Date: 20190619
  Receipt Date: 20200316
  Transmission Date: 20200409
  Serious: Yes (Hospitalization)
  Sender: FDA-Public Use
  Company Number: PHHY2019DE138618

PATIENT
  Age: 84 Year
  Sex: Male
  Weight: 110 kg

DRUGS (11)
  1. ALLOPURINOL. [Concomitant]
     Active Substance: ALLOPURINOL
     Indication: PRODUCT USED FOR UNKNOWN INDICATION
     Dosage: 100 MG, QD (0-0-1)
     Route: 065
  2. ZOLPIDEM [Concomitant]
     Active Substance: ZOLPIDEM TARTRATE
     Indication: PRODUCT USED FOR UNKNOWN INDICATION
     Dosage: 5 MG, QD (0-0-0-1)
     Route: 065
  3. PREDNISOLON [Concomitant]
     Active Substance: PREDNISOLONE
     Indication: PRODUCT USED FOR UNKNOWN INDICATION
     Dosage: 5 MG, QD (1-0-0)
     Route: 065
  4. METOPROLOL. [Concomitant]
     Active Substance: METOPROLOL
     Indication: PRODUCT USED FOR UNKNOWN INDICATION
     Dosage: 3 MG, UNK
     Route: 065
     Dates: start: 20190418
  5. IRBESARTAN. [Concomitant]
     Active Substance: IRBESARTAN
     Indication: PRODUCT USED FOR UNKNOWN INDICATION
     Dosage: 75 MG, QD (1-0-0, ALTERNATIVE 0-0-1)
     Route: 065
     Dates: start: 20090120
  6. TORASEMID [Concomitant]
     Active Substance: TORSEMIDE
     Indication: PRODUCT USED FOR UNKNOWN INDICATION
     Dosage: 10 MG, QD (1-0-0)
     Route: 065
  7. MACROGOL [Concomitant]
     Active Substance: POLYETHYLENE GLYCOLS
     Indication: PRODUCT USED FOR UNKNOWN INDICATION
     Dosage: UNK UNK, QD (1-0-0) (BAG)
     Route: 065
  8. FOLIC ACID. [Concomitant]
     Active Substance: FOLIC ACID
     Indication: PRODUCT USED FOR UNKNOWN INDICATION
     Dosage: 5 MG, QW (ON MONDAY)
     Route: 065
     Dates: start: 20171026, end: 20190315
  9. METOPROLOL. [Concomitant]
     Active Substance: METOPROLOL
     Dosage: 47.5 MG, BID(0.5-0-0.5)
     Route: 065
  10. COSENTYX [Suspect]
     Active Substance: SECUKINUMAB
     Indication: PSORIASIS
     Dosage: 150 MG, Q4W (1 DAY/ WEEK)
     Route: 065
     Dates: start: 20171018
  11. PANTOZOL [Concomitant]
     Active Substance: PANTOPRAZOLE SODIUM
     Indication: PRODUCT USED FOR UNKNOWN INDICATION
     Dosage: 40 MG, QD (1-0-0)
     Route: 065

REACTIONS (28)
  - Dyspnoea [Recovered/Resolved]
  - Eyelid ptosis [Unknown]
  - Hypokinesia [Unknown]
  - Rosacea [Unknown]
  - Chest pain [Unknown]
  - Echopraxia [Unknown]
  - Melaena [Unknown]
  - Atrial fibrillation [Recovering/Resolving]
  - Urge incontinence [Unknown]
  - Viral infection [Recovered/Resolved]
  - Supraventricular extrasystoles [Unknown]
  - Feeling abnormal [Unknown]
  - Chest discomfort [Unknown]
  - Eyelid oedema [Unknown]
  - Arrhythmia [Unknown]
  - Epistaxis [Unknown]
  - Depression [Unknown]
  - Tachycardia [Recovered/Resolved with Sequelae]
  - Tachyarrhythmia [Unknown]
  - Bundle branch block right [Unknown]
  - Ventricular extrasystoles [Unknown]
  - Fall [Unknown]
  - Cognitive disorder [Recovering/Resolving]
  - Fatigue [Unknown]
  - Eye oedema [Unknown]
  - Electrocardiogram repolarisation abnormality [Unknown]
  - Concomitant disease aggravated [Recovered/Resolved]
  - Skin laceration [Unknown]

NARRATIVE: CASE EVENT DATE: 20190315
